FAERS Safety Report 6384534-9 (Version None)
Quarter: 2009Q4

REPORT INFORMATION
  Report Type: 
  Country: None (occurrence: None)
  Receive Date: 20091001
  Receipt Date: 20090921
  Transmission Date: 20100525
  Serious: Yes (Hospitalization)
  Sender: FDA-Public Use
  Company Number: NL-TEVA-210617ISR

PATIENT
  Sex: Female
  Weight: 56.1 kg

DRUGS (5)
  1. ETOPOSIDE [Suspect]
     Indication: NON-SMALL CELL LUNG CANCER STAGE III
     Dates: end: 20090904
  2. CISPLATIN [Suspect]
     Indication: NON-SMALL CELL LUNG CANCER STAGE III
     Dates: end: 20090907
  3. FOLIC ACID [Concomitant]
  4. VITAMIN B12 NOS [Concomitant]
  5. DEXAMETHASONE 4MG TAB [Concomitant]

REACTIONS (2)
  - DEHYDRATION [None]
  - OESOPHAGITIS [None]
